FAERS Safety Report 19373928 (Version 1)
Quarter: 2021Q2

REPORT INFORMATION
  Report Type: Spontaneous
  Country: JP (occurrence: JP)
  Receive Date: 20210603
  Receipt Date: 20210603
  Transmission Date: 20210717
  Serious: Yes (Other)
  Sender: FDA-Public Use
  Company Number: JP-ABBVIE-21K-087-3932739-00

PATIENT
  Age: 4 Year

DRUGS (2)
  1. SEVORANE [Suspect]
     Active Substance: SEVOFLURANE
     Indication: INDUCTION OF ANAESTHESIA
     Route: 065
  2. PROPOFOL. [Concomitant]
     Active Substance: PROPOFOL
     Indication: INDUCTION OF ANAESTHESIA

REACTIONS (2)
  - Bronchial disorder [Recovered/Resolved]
  - Light anaesthesia [Recovered/Resolved]

NARRATIVE: CASE EVENT DATE: 1998
